FAERS Safety Report 9709191 (Version 1)
Quarter: 2013Q4

REPORT INFORMATION
  Report Type: Report from Study
  Country: NO (occurrence: NO)
  Receive Date: 20131125
  Receipt Date: 20131125
  Transmission Date: 20140711
  Serious: Yes (Other)
  Sender: FDA-Public Use
  Company Number: NO-BAXTER-2013BAX047042

PATIENT
  Sex: 0

DRUGS (10)
  1. SENDOXAN 1000 MG PULVER TIL INJEKSJONSV?SKE, OPPL?SNING [Suspect]
     Indication: LYMPHOMA
     Route: 042
  2. RITUXIMAB [Suspect]
     Indication: LYMPHOMA
     Route: 065
  3. DOXORUBICIN [Suspect]
     Indication: LYMPHOMA
     Route: 042
  4. VINCRISTINE [Suspect]
     Indication: LYMPHOMA
     Route: 042
  5. ETOPOSIDE [Suspect]
     Indication: LYMPHOMA
     Route: 042
  6. PREDNISONE [Suspect]
     Indication: LYMPHOMA
     Route: 048
  7. GRANULOCYTE COLONY-STIMULATING FACTOR NOS [Suspect]
     Indication: PROPHYLAXIS
     Route: 065
  8. CYTARABINE [Suspect]
     Indication: PROPHYLAXIS
     Dosage: 3 GM/M2 OR 2 G/M2
     Route: 042
  9. METHOTREXATE [Suspect]
     Indication: PROPHYLAXIS
     Dosage: 3 G/M2 OR 1.5 G/M2
     Route: 042
  10. CALCIUM FOLINATE [Suspect]
     Indication: FOLATE DEFICIENCY
     Route: 065

REACTIONS (1)
  - Disease progression [Unknown]
